FAERS Safety Report 8354398-2 (Version None)
Quarter: 2012Q2

REPORT INFORMATION
  Report Type: 
  Country: None (occurrence: None)
  Receive Date: 20120511
  Receipt Date: 20120501
  Transmission Date: 20120825
  Serious: Yes (Other)
  Sender: FDA-Public Use
  Company Number: US-JNJFOC-20120104182

PATIENT
  Sex: Male
  Weight: 88.45 kg

DRUGS (32)
  1. REMICADE [Suspect]
     Indication: CROHN'S DISEASE
     Route: 042
     Dates: start: 20091104
  2. REMICADE [Suspect]
     Route: 042
     Dates: start: 20100616
  3. REMICADE [Suspect]
     Route: 042
     Dates: start: 20081008
  4. REMICADE [Suspect]
     Route: 042
     Dates: start: 20080813
  5. REMICADE [Suspect]
     Route: 042
     Dates: start: 20120214
  6. REMICADE [Suspect]
     Route: 042
     Dates: start: 20120410
  7. IRON [Concomitant]
     Route: 048
  8. REMICADE [Suspect]
     Route: 042
     Dates: start: 20110127
  9. REMICADE [Suspect]
     Route: 042
     Dates: start: 20090129
  10. HYOSCYAMINE SULFATE [Concomitant]
     Route: 060
  11. REMICADE [Suspect]
     Route: 042
     Dates: start: 20111026
  12. REMICADE [Suspect]
     Route: 042
     Dates: start: 20090521
  13. REMICADE [Suspect]
     Route: 042
     Dates: start: 20090326
  14. NASONEX [Concomitant]
     Indication: SEASONAL ALLERGY
     Route: 045
  15. VITAMIN B-12 [Concomitant]
     Route: 030
  16. TYLENOL (CAPLET) [Concomitant]
     Route: 048
  17. VITAMIN D [Concomitant]
     Route: 048
  18. REMICADE [Suspect]
     Route: 042
     Dates: start: 20101201
  19. REMICADE [Suspect]
     Route: 042
     Dates: start: 20110706
  20. REMICADE [Suspect]
     Route: 042
     Dates: start: 20110901
  21. REMICADE [Suspect]
     Route: 042
     Dates: start: 20090716
  22. ALLEGRA [Concomitant]
     Route: 048
  23. REMICADE [Suspect]
     Route: 042
     Dates: start: 20081203
  24. REMICADE [Suspect]
     Route: 042
     Dates: start: 20100811
  25. REMICADE [Suspect]
     Route: 042
     Dates: start: 20101006
  26. REMICADE [Suspect]
     Route: 042
     Dates: start: 20090909
  27. REMICADE [Suspect]
     Route: 042
     Dates: start: 20091229
  28. SUDAFED NOS [Concomitant]
     Route: 048
  29. PROAIR HFA [Concomitant]
     Dosage: 2 PUFF EVERY 4-6 HOURS AS NEEDED
     Route: 055
  30. REMICADE [Suspect]
     Route: 042
     Dates: start: 20100224
  31. REMICADE [Suspect]
     Route: 042
     Dates: start: 20100423
  32. REMICADE [Suspect]
     Route: 042
     Dates: start: 20110323

REACTIONS (3)
  - ASTHMA [None]
  - MEMORY IMPAIRMENT [None]
  - AMNESIA [None]
